FAERS Safety Report 15655561 (Version 2)
Quarter: 2019Q1

REPORT INFORMATION
  Report Type: Spontaneous
  Country: US (occurrence: US)
  Receive Date: 20181126
  Receipt Date: 20190211
  Transmission Date: 20190417
  Serious: No
  Sender: FDA-Public Use
  Company Number: US-SA-2018SA321215

PATIENT
  Age: 58 Year
  Sex: Male

DRUGS (20)
  1. DUPIXENT [Suspect]
     Active Substance: DUPILUMAB
     Dosage: 300 MG, QOW
     Route: 058
     Dates: start: 20181109
  2. GABAPENTIN. [Concomitant]
     Active Substance: GABAPENTIN
     Dosage: 600 MG, QID
  3. DOXEPIN [Concomitant]
     Active Substance: DOXEPIN
     Dosage: 50 MG, HS
     Route: 048
  4. DOXEPIN [Concomitant]
     Active Substance: DOXEPIN
     Dosage: 30 MG, HS
     Route: 048
  5. MICONAZOLE. [Concomitant]
     Active Substance: MICONAZOLE
     Route: 061
  6. ZINC OXIDE SIMPLE OINTMENT [Concomitant]
     Active Substance: ZINC OXIDE
     Route: 061
  7. BENADRYL ALLERGY [Concomitant]
     Active Substance: DIPHENHYDRAMINE HYDROCHLORIDE
  8. DOXEPIN [Concomitant]
     Active Substance: DOXEPIN
     Dosage: 70 MG, HS
     Route: 048
  9. DOXEPIN [Concomitant]
     Active Substance: DOXEPIN
     Dosage: 80 MG, HS
     Route: 048
  10. DOXEPIN [Concomitant]
     Active Substance: DOXEPIN
     Dosage: 20 MG, HS
     Route: 048
  11. DOXEPIN [Concomitant]
     Active Substance: DOXEPIN
     Dosage: 60 MG, HS
     Route: 048
  12. DOXEPIN [Concomitant]
     Active Substance: DOXEPIN
     Dosage: 90 MG, HS
     Route: 048
  13. DOXEPIN [Concomitant]
     Active Substance: DOXEPIN
     Dosage: 30 MG, HS
     Route: 048
  14. DOXEPIN [Concomitant]
     Active Substance: DOXEPIN
     Dosage: 100 MG, HS
     Route: 048
  15. DUPIXENT [Suspect]
     Active Substance: DUPILUMAB
     Indication: DERMATITIS ATOPIC
     Dosage: 600 MG, 1X
     Route: 058
     Dates: start: 20181015, end: 20181015
  16. DESONIDE. [Concomitant]
     Active Substance: DESONIDE
     Dosage: 3-4 TIMES WEEKLY
     Route: 061
  17. DOXEPIN [Concomitant]
     Active Substance: DOXEPIN
     Indication: PRURITUS
     Dosage: 10 MG, HS
     Route: 048
  18. DOXEPIN [Concomitant]
     Active Substance: DOXEPIN
     Dosage: 50 MG, HS
     Route: 048
  19. HYDROCORTISONE. [Concomitant]
     Active Substance: HYDROCORTISONE
     Route: 061
  20. HYDROCORTISONE. [Concomitant]
     Active Substance: HYDROCORTISONE
     Route: 061

REACTIONS (1)
  - Rash pruritic [Recovering/Resolving]

NARRATIVE: CASE EVENT DATE: 201811
